FAERS Safety Report 8548542-1 (Version None)
Quarter: 2012Q3

REPORT INFORMATION
  Report Type: 
  Country: None (occurrence: None)
  Receive Date: 20120730
  Receipt Date: 20120718
  Transmission Date: 20120928
  Serious: Yes (Life-Threatening, Hospitalization, Other)
  Sender: FDA-Public Use
  Company Number: US-BAYER-2012-002973

PATIENT
  Age: 48 Year
  Sex: Female
  Weight: 51.882 kg

DRUGS (11)
  1. TRAZODONE HYDROCHLORIDE [Concomitant]
     Indication: DEPRESSION
     Dosage: 50 MG, HS
     Dates: start: 20081120, end: 20090626
  2. YAZ [Suspect]
  3. EFFEXOR [Concomitant]
     Dosage: 75 MG, BID
     Dates: start: 20090102, end: 20101210
  4. CLONAZEPAM [Concomitant]
     Indication: ANXIETY
     Dosage: 2 MG, QAM
     Dates: start: 20010827, end: 20101226
  5. OXYCODONE HCL [Concomitant]
     Indication: PAIN
     Dosage: UNK
     Dates: start: 20080307, end: 20100118
  6. DROSPIRENONE AND ETHINYL ESTRADIOL [Suspect]
  7. PERCOCET [Concomitant]
  8. NSAID'S [Concomitant]
     Dosage: UNK
     Dates: start: 20080101, end: 20110101
  9. MIRTAZAPINE [Concomitant]
     Indication: DEPRESSION
     Dosage: UNK
     Dates: start: 20041230, end: 20100623
  10. DROSPIRENONE AND ETHINYL ESTRADIOL [Suspect]
     Indication: CONTRACEPTION
     Dosage: UNK
     Route: 048
     Dates: start: 20081120, end: 20090302
  11. DROSPIRENONE AND ETHINYL ESTRADIOL [Suspect]
     Indication: PREMENSTRUAL SYNDROME

REACTIONS (14)
  - CHEST PAIN [None]
  - EMOTIONAL DISTRESS [None]
  - POST-TRAUMATIC STRESS DISORDER [None]
  - PULMONARY INFARCTION [None]
  - INJURY [None]
  - GENERAL PHYSICAL HEALTH DETERIORATION [None]
  - DEPRESSION [None]
  - PAIN [None]
  - ANXIETY [None]
  - DRUG DEPENDENCE [None]
  - PULMONARY EMBOLISM [None]
  - FATIGUE [None]
  - MENTAL DISORDER [None]
  - ALCOHOLISM [None]
